FAERS Safety Report 9836204 (Version 4)
Quarter: 2015Q2

REPORT INFORMATION
  Report Type: Report from Study
  Country: DK (occurrence: DK)
  Receive Date: 20140123
  Receipt Date: 20150401
  Transmission Date: 20150821
  Serious: Yes (Other)
  Sender: FDA-Public Use
  Company Number: DK-AMGEN-DNKCT2014004748

PATIENT
  Age: 72 Year
  Sex: Male

DRUGS (10)
  1. METHOTREXATE [Concomitant]
     Active Substance: METHOTREXATE
     Indication: RHEUMATOID ARTHRITIS
     Dosage: STRENGTH: 2.5 MG - STILL ONGOING (DOSE UNTIL 06JUN2013: 10 MG ONCE WEEKLY, THEN 15 MG/WEEK)
     Route: 048
     Dates: start: 20011108, end: 20130606
  2. REMICADE [Concomitant]
     Active Substance: INFLIXIMAB
     Indication: RHEUMATOID ARTHRITIS
     Dosage: 200 MG, UNK
     Route: 065
     Dates: start: 20080404, end: 20130429
  3. HJERDYL [Concomitant]
     Active Substance: ASPIRIN
     Indication: ANTICOAGULANT THERAPY
     Dosage: STRENGTH 75 MG; 75 MG, 1X/DAY
  4. SIMVASTATIN. [Concomitant]
     Active Substance: SIMVASTATIN
     Indication: HYPERCHOLESTEROLAEMIA
     Dosage: 40 MG, DAILY, STRENGTH 40MG
     Route: 048
  5. ALENDRONATE [Concomitant]
     Active Substance: ALENDRONATE SODIUM
     Indication: OSTEOPOROSIS
     Dosage: 70 MG, DAILY
     Route: 048
  6. METHOTREXATE [Concomitant]
     Active Substance: METHOTREXATE
     Dosage: STRENGTH: 2.5 MG - STILL ONGOING (DOSE UNTIL 06JUN2013: 10 MG ONCE WEEKLY, THEN 15 MG/WEEK)
     Route: 048
  7. INSULIN [Concomitant]
     Active Substance: INSULIN NOS
     Indication: DIABETES MELLITUS
     Dosage: UNK
     Route: 058
  8. METFORMIN [Concomitant]
     Active Substance: METFORMIN HYDROCHLORIDE
     Indication: DIABETES MELLITUS
     Dosage: 1000 MG, DAILY STRENGTH: 500MG
  9. RAMIPRIL. [Concomitant]
     Active Substance: RAMIPRIL
     Indication: HYPERTENSION
     Dosage: 5 MG, DAILY
     Route: 048
  10. ETANERCEPT [Suspect]
     Active Substance: ETANERCEPT
     Indication: RHEUMATOID ARTHRITIS
     Dosage: 50 MG, WEEKLY
     Route: 065
     Dates: start: 20130607, end: 20130907

REACTIONS (2)
  - Bladder cancer [Not Recovered/Not Resolved]
  - Bladder pain [Unknown]

NARRATIVE: CASE EVENT DATE: 20130701
